FAERS Safety Report 11051537 (Version 2)
Quarter: 2015Q2

REPORT INFORMATION
  Report Type: Spontaneous
  Country: US (occurrence: US)
  Receive Date: 20150421
  Receipt Date: 20150609
  Transmission Date: 20150821
  Serious: Yes (Hospitalization)
  Sender: FDA-Public Use
  Company Number: US-PFIZER INC-2015131236

PATIENT
  Age: 65 Year
  Sex: Female
  Weight: 41 kg

DRUGS (2)
  1. ESTRING [Suspect]
     Active Substance: ESTRADIOL
     Indication: VULVOVAGINAL DRYNESS
     Dosage: 20 MG, UNK
  2. ESTRING [Suspect]
     Active Substance: ESTRADIOL
     Indication: VAGINAL INFECTION

REACTIONS (1)
  - Spinal disorder [Not Recovered/Not Resolved]
